FAERS Safety Report 23223558 (Version 1)
Quarter: 2023Q4

REPORT INFORMATION
  Report Type: Spontaneous
  Country: US (occurrence: US)
  Receive Date: 20231124
  Receipt Date: 20231124
  Transmission Date: 20240110
  Serious: No
  Sender: FDA-Public Use
  Company Number: US-BRISTOL-MYERS SQUIBB COMPANY-2023-169656

PATIENT
  Age: 62 Year
  Sex: Male
  Weight: 100.6 kg

DRUGS (1)
  1. BREYANZI [Suspect]
     Active Substance: LISOCABTAGENE MARALEUCEL
     Indication: Non-Hodgkin^s lymphoma
     Dates: start: 20230214

REACTIONS (1)
  - Fatigue [Not Recovered/Not Resolved]
